FAERS Safety Report 11298963 (Version 1)
Quarter: 2015Q3

REPORT INFORMATION
  Report Type: Spontaneous
  Country: US (occurrence: US)
  Receive Date: 20150722
  Receipt Date: 20150722
  Transmission Date: 20151125
  Serious: Yes (Other)
  Sender: FDA-Public Use
  Company Number: US-ELI_LILLY_AND_COMPANY-US201203002692

PATIENT
  Sex: Female
  Weight: 90.25 kg

DRUGS (3)
  1. ASPIRIN. [Concomitant]
     Active Substance: ASPIRIN
  2. REQUIP [Concomitant]
     Active Substance: ROPINIROLE HYDROCHLORIDE
     Dosage: UNK, UNKNOWN
  3. EFFIENT [Suspect]
     Active Substance: PRASUGREL HYDROCHLORIDE
     Indication: STENT PLACEMENT
     Dosage: UNK, UNKNOWN
     Dates: start: 20120206, end: 20120307

REACTIONS (5)
  - Epistaxis [Recovered/Resolved]
  - Contusion [Recovered/Resolved]
  - Vaginal haemorrhage [Recovered/Resolved]
  - Drug dose omission [Recovered/Resolved]
  - Pruritus [Recovered/Resolved]
